FAERS Safety Report 16341334 (Version 2)
Quarter: 2019Q2

REPORT INFORMATION
  Report Type: Report from Study
  Country: MX (occurrence: MX)
  Receive Date: 20190522
  Receipt Date: 20190523
  Transmission Date: 20190711
  Serious: Yes (Other)
  Sender: FDA-Public Use
  Company Number: PHHY2019MX116470

PATIENT
  Sex: Male
  Weight: 76 kg

DRUGS (1)
  1. GALVUS MET [Suspect]
     Active Substance: METFORMIN HYDROCHLORIDE\VILDAGLIPTIN
     Indication: DIABETES MELLITUS
     Dosage: 1 DF (METFORMIN 800 MG, VALSARTAN 50 MG), BID
     Route: 048
     Dates: start: 201902

REACTIONS (1)
  - Diabetes mellitus inadequate control [Unknown]
